FAERS Safety Report 4489404-9 (Version None)
Quarter: 2004Q4

REPORT INFORMATION
  Report Type: 
  Country: None (occurrence: None)
  Receive Date: 20041025
  Receipt Date: 20041013
  Transmission Date: 20050328
  Serious: Yes (Other)
  Sender: FDA-Public Use
  Company Number: 2004077396

PATIENT
  Sex: Male
  Weight: 79.3795 kg

DRUGS (9)
  1. FRESHBURST LISTERINE (EUCALYPTOL, MENTHOL, METHYL SALICYLATE, THYMOL) [Suspect]
     Indication: DENTAL CARE
     Dosage: 1 TABLESPOON 4 OR 5 TIMES A WEEK,ORAL TOPICAL
  2. ACETYLSALICYLIC ACID SRT [Suspect]
     Dosage: 325 MG  ODOF DECREASED TO 2 81 MG QD,ORAL
     Route: 048
  3. DRUG, UNSPECIFIED (DRUG, UNSPECIFIED) [Suspect]
     Indication: CARDIAC FUNCTION TEST
  4. VERAPAMIL [Concomitant]
  5. PROPAFENONE HCL [Concomitant]
  6. GABAPENTIN [Concomitant]
  7. TERAZOSIN (TERAZOSIN) [Concomitant]
  8. OMEPRAZOLE [Concomitant]
  9. PROPACET 100 [Concomitant]

REACTIONS (3)
  - BACK DISORDER [None]
  - THROMBOSIS [None]
  - TREATMENT NONCOMPLIANCE [None]
